FAERS Safety Report 8248763-1 (Version None)
Quarter: 2012Q1

REPORT INFORMATION
  Report Type: 
  Country: None (occurrence: None)
  Receive Date: 20120331
  Receipt Date: 20120328
  Transmission Date: 20120608
  Serious: Yes (Death, Hospitalization)
  Sender: FDA-Public Use
  Company Number: PHEH2011US012898

PATIENT
  Sex: Female

DRUGS (1)
  1. TASIGNA [Suspect]
     Indication: CHRONIC MYELOID LEUKAEMIA
     Dosage: 300 MG, BID
     Route: 048
     Dates: start: 20111220

REACTIONS (3)
  - FLUID OVERLOAD [None]
  - CARDIAC FAILURE CONGESTIVE [None]
  - DEATH [None]
